FAERS Safety Report 4475324-2 (Version None)
Quarter: 2004Q4

REPORT INFORMATION
  Report Type: 
  Country: None (occurrence: None)
  Receive Date: 20041015
  Receipt Date: 20040910
  Transmission Date: 20050328
  Serious: Yes (Death)
  Sender: FDA-Public Use
  Company Number: 200416874US

PATIENT
  Sex: Male
  Weight: 60 kg

DRUGS (8)
  1. ENOXAPARIN SODIUM [Suspect]
     Indication: THROMBOSIS PROPHYLAXIS
     Route: 058
     Dates: start: 20040823, end: 20040830
  2. COLACE [Concomitant]
     Indication: CONSTIPATION
     Route: 048
     Dates: start: 20040823, end: 20040827
  3. FOLATE [Concomitant]
     Route: 048
     Dates: start: 20040824, end: 20040827
  4. MULTIVITAMINS, PLAIN [Concomitant]
     Indication: VITAMIN SUPPLEMENTATION
     Route: 048
     Dates: start: 20040824, end: 20040902
  5. PLAVIX [Concomitant]
     Route: 048
     Dates: start: 20040824, end: 20040902
  6. PROTONIX [Concomitant]
     Route: 048
     Dates: start: 20040824, end: 20040902
  7. UNKNOWN DRUG [Concomitant]
     Route: 048
     Dates: start: 20040825, end: 20040902
  8. ALUMINUM HYDROXIDE AND MAGNESIUM TRISILICATE [Concomitant]
     Indication: GASTROOESOPHAGEAL REFLUX DISEASE
     Route: 048
     Dates: start: 20040825, end: 20040825

REACTIONS (2)
  - CARDIAC ARREST [None]
  - SUDDEN DEATH [None]
